FAERS Safety Report 5772908-6 (Version None)
Quarter: 2008Q2

REPORT INFORMATION
  Report Type: 
  Country: None (occurrence: None)
  Receive Date: 20080613
  Receipt Date: 20080602
  Transmission Date: 20081010
  Serious: Yes (Other)
  Sender: FDA-Public Use
  Company Number: US-PFIZER INC-2008047200

PATIENT
  Sex: Female

DRUGS (3)
  1. CHANTIX [Suspect]
  2. ZOLOFT [Concomitant]
  3. ANALGESICS [Concomitant]

REACTIONS (9)
  - BLOOD CHLORIDE INCREASED [None]
  - CARBON DIOXIDE DECREASED [None]
  - ELECTROCARDIOGRAM ABNORMAL [None]
  - ELECTROCARDIOGRAM ST SEGMENT DEPRESSION [None]
  - EMOTIONAL DISTRESS [None]
  - IMPAIRED WORK ABILITY [None]
  - PAIN [None]
  - PALPITATIONS [None]
  - SUPRAVENTRICULAR TACHYCARDIA [None]
